FAERS Safety Report 9225470 (Version 1)
Quarter: 2013Q2

REPORT INFORMATION
  Report Type: Report from Study
  Country: DE (occurrence: DE)
  Receive Date: 20130411
  Receipt Date: 20130411
  Transmission Date: 20140414
  Serious: Yes (Other)
  Sender: FDA-Public Use
  Company Number: DE-BAXTER-2013BAX013815

PATIENT
  Sex: Male

DRUGS (6)
  1. ENDOXAN 1G [Suspect]
     Indication: NON-HODGKIN^S LYMPHOMA
  2. RITUXIMAB [Concomitant]
     Indication: NON-HODGKIN^S LYMPHOMA
  3. ETOPOSIDE [Concomitant]
     Indication: NON-HODGKIN^S LYMPHOMA
  4. DOXORUBICIN [Concomitant]
     Indication: NON-HODGKIN^S LYMPHOMA
  5. VINCRISTINE [Concomitant]
     Indication: NON-HODGKIN^S LYMPHOMA
  6. PREDNISONE [Concomitant]
     Indication: NON-HODGKIN^S LYMPHOMA

REACTIONS (2)
  - Exposure via father [Recovered/Resolved]
  - No adverse event [Recovered/Resolved]
